FAERS Safety Report 10008737 (Version 1)
Quarter: 2014Q1

REPORT INFORMATION
  Report Type: Spontaneous
  Country: US (occurrence: US)
  Receive Date: 20140312
  Receipt Date: 20140312
  Transmission Date: 20141002
  Serious: No
  Sender: FDA-Public Use
  Company Number: US-INCYTE CORPORATION-2012IN000333

PATIENT
  Age: 62 Year
  Sex: Male

DRUGS (8)
  1. JAKAFI [Suspect]
     Indication: MYELOFIBROSIS
     Dosage: 20 MG, BID
     Route: 048
     Dates: start: 20120104
  2. ENALAPRIL [Concomitant]
     Indication: HYPERTENSION
     Dosage: UNK
     Dates: end: 2012
  3. ENALAPRIL [Concomitant]
     Dosage: UNK
     Dates: start: 2012
  4. METOPROLOL [Concomitant]
     Indication: HYPERTENSION
     Dosage: UNK
     Dates: end: 2012
  5. METOPROLOL [Concomitant]
     Dosage: UNK
     Dates: start: 2012
  6. LEVAQUIN [Concomitant]
  7. ALLEGRA-D [Concomitant]
  8. ASPIRIN [Concomitant]
     Dosage: 325 MG, UNK

REACTIONS (1)
  - Blood pressure increased [Unknown]
